FAERS Safety Report 7368998 (Version 3)
Quarter: 2016Q3

REPORT INFORMATION
  Report Type: Report from Study
  Country: US (occurrence: US)
  Receive Date: 20100428
  Receipt Date: 20160913
  Transmission Date: 20161109
  Serious: Yes (Hospitalization, Other)
  Sender: FDA-Public Use
  Company Number: US-ROCHE-699269

PATIENT
  Age: 75 Year
  Sex: Female
  Weight: 76 kg

DRUGS (4)
  1. BEVACIZUMAB [Suspect]
     Active Substance: BEVACIZUMAB
     Route: 042
  2. BEVACIZUMAB [Suspect]
     Active Substance: BEVACIZUMAB
     Indication: OVARIAN NEOPLASM
     Dosage: FREQUENCY:OVER 30-90 MINUTES ON DAY 1 AND 15.LAST DOSE OF  PRIOR TO SAE:26 APRIL 2010(CYCLE1, DAY15)
     Route: 042
  3. TEMSIROLIMUS [Suspect]
     Active Substance: TEMSIROLIMUS
     Route: 042
  4. TEMSIROLIMUS [Suspect]
     Active Substance: TEMSIROLIMUS
     Indication: OVARIAN NEOPLASM
     Dosage: FREQUENCY:OVER 30 MINUTES ON DAY 1,8,15 AND22.LAST DOSE OF  PRIOR TO SAE: 03 MAY 2010 (CYCLE1,DAY22)
     Route: 042

REACTIONS (8)
  - Dehydration [Not Recovered/Not Resolved]
  - Hypokalaemia [Not Recovered/Not Resolved]
  - Arthralgia [Unknown]
  - Hypoacusis [Unknown]
  - Fatigue [Unknown]
  - Pulmonary haemorrhage [Unknown]
  - Hypophosphataemia [Not Recovered/Not Resolved]
  - Mucosal inflammation [Unknown]

NARRATIVE: CASE EVENT DATE: 20100320
